APPROVED DRUG PRODUCT: SEVELAMER CARBONATE
Active Ingredient: SEVELAMER CARBONATE
Strength: 800MG
Dosage Form/Route: TABLET;ORAL
Application: A206094 | Product #001 | TE Code: AB
Applicant: DR REDDYS LABORATORIES LTD
Approved: Sep 29, 2017 | RLD: No | RS: No | Type: RX